FAERS Safety Report 8240989-6 (Version None)
Quarter: 2012Q1

REPORT INFORMATION
  Report Type: 
  Country: None (occurrence: None)
  Receive Date: 20120328
  Receipt Date: 20120321
  Transmission Date: 20120608
  Serious: Yes (Death)
  Sender: FDA-Public Use
  Company Number: US-CELGENEUS-163-21880-12023136

PATIENT
  Sex: Male

DRUGS (9)
  1. REVLIMID [Suspect]
     Indication: MULTIPLE MYELOMA
     Dosage: 25 MILLIGRAM
     Route: 048
     Dates: start: 20101223
  2. AMIODARONE HCL [Concomitant]
     Route: 065
  3. DEXAMETHASONE [Concomitant]
     Route: 065
  4. DILTIAZEM HCL [Concomitant]
     Route: 065
  5. ACTOS [Concomitant]
     Route: 065
  6. EFFEXOR XR [Concomitant]
     Route: 065
  7. DIGOXIN [Concomitant]
     Route: 065
  8. ACYCLOVIR [Concomitant]
     Route: 065
  9. DOCUSATE SODIUM [Concomitant]
     Route: 065

REACTIONS (1)
  - MULTIPLE MYELOMA [None]
